FAERS Safety Report 23223299 (Version 1)
Quarter: 2023Q4

REPORT INFORMATION
  Report Type: Report from Study
  Country: IT (occurrence: IT)
  Receive Date: 20231123
  Receipt Date: 20231123
  Transmission Date: 20240110
  Serious: Yes (Other)
  Sender: FDA-Public Use
  Company Number: None

PATIENT
  Age: 64 Year
  Sex: Male

DRUGS (4)
  1. FLUOROURACIL [Suspect]
     Active Substance: FLUOROURACIL
     Indication: Pancreatic carcinoma
     Dosage: START OF THERAPY DECEMBER 2022 - 16/01/2023 III CYCLE - THERAPY EVERY 14 DAYS
     Dates: start: 20230116, end: 20230116
  2. FLUOROURACIL [Suspect]
     Active Substance: FLUOROURACIL
     Indication: Pancreatic carcinoma
     Dosage: START OF THERAPY DECEMBER 2022 - 16/01/2023 III CYCLE - THERAPY EVERY 14 DAYS
     Dates: start: 20230116, end: 20230116
  3. OXALIPLATIN [Suspect]
     Active Substance: OXALIPLATIN
     Indication: Pancreatic carcinoma
     Dosage: START OF THERAPY DECEMBER 2022 - 16/01/2023 III CYCLE - THERAPY EVERY 14 DAYS  , OXALIPLATINO
     Dates: start: 20230116, end: 20230116
  4. LEVOLEUCOVORIN [Concomitant]
     Active Substance: LEVOLEUCOVORIN
     Indication: Product used for unknown indication
     Dosage: ACIDO LEVO FOLINICO

REACTIONS (4)
  - Thrombocytopenia [Recovering/Resolving]
  - Red blood cell count decreased [Recovering/Resolving]
  - Haemoglobin decreased [Recovering/Resolving]
  - Off label use [Recovering/Resolving]

NARRATIVE: CASE EVENT DATE: 20230116
